FAERS Safety Report 15587651 (Version 2)
Quarter: 2018Q4

REPORT INFORMATION
  Report Type: Report from Study
  Country: US (occurrence: US)
  Receive Date: 20181105
  Receipt Date: 20181120
  Transmission Date: 20190205
  Serious: Yes (Hospitalization)
  Sender: FDA-Public Use
  Company Number: US-PFIZER INC-2018444807

PATIENT
  Age: 45 Year
  Sex: Male
  Weight: 85.5 kg

DRUGS (9)
  1. CLINDAMYCIN. [Concomitant]
     Active Substance: CLINDAMYCIN
     Indication: CELLULITIS
     Dosage: 900 MG, UNK
     Route: 042
     Dates: start: 20181024
  2. SENOKOT [Concomitant]
     Active Substance: SENNOSIDES
     Indication: CONSTIPATION
     Dosage: UNK
     Dates: start: 20180621
  3. PALBOCICLIB [Suspect]
     Active Substance: PALBOCICLIB
     Dosage: 75 MG, 21 DAYS ON, 7 DAYS OFF
     Dates: start: 20180621
  4. CLINDAMYCIN. [Concomitant]
     Active Substance: CLINDAMYCIN
     Dosage: 900 MG, 3X/DAY
     Route: 048
  5. DOXYCYCLINE. [Concomitant]
     Active Substance: DOXYCYCLINE
     Indication: RASH
     Dosage: UNK
     Dates: start: 20180625
  6. AVELUMAB [Suspect]
     Active Substance: AVELUMAB
     Dosage: 871 MG, Q2W
     Dates: start: 20180621
  7. CETUXIMAB. [Suspect]
     Active Substance: CETUXIMAB
     Dosage: 530 MG, QW
     Dates: start: 20180621
  8. ACETAMINOPHEN. [Concomitant]
     Active Substance: ACETAMINOPHEN
     Indication: PROPHYLAXIS
     Dosage: UNK
     Dates: start: 20180621
  9. DIPHENHYDRAMINE. [Concomitant]
     Active Substance: DIPHENHYDRAMINE
     Indication: PROPHYLAXIS
     Dosage: UNK
     Dates: start: 20130621

REACTIONS (1)
  - Cellulitis [Recovered/Resolved]

NARRATIVE: CASE EVENT DATE: 20181025
